FAERS Safety Report 8608099 (Version 2)
Quarter: 2014Q1

REPORT INFORMATION
  Report Type: Spontaneous
  Country: US (occurrence: US)
  Receive Date: 20120611
  Receipt Date: 20140108
  Transmission Date: 20141002
  Serious: Yes (Disabling)
  Sender: FDA-Public Use
  Company Number: US-ASTRAZENECA-2012SE34972

PATIENT
  Age: 45 Year
  Sex: Male
  Weight: 81.6 kg

DRUGS (2)
  1. NEXIUM [Suspect]
     Indication: GASTROOESOPHAGEAL REFLUX DISEASE
     Route: 048
  2. NEXIUM [Suspect]
     Indication: GASTROOESOPHAGEAL REFLUX DISEASE
     Dosage: TWICE A DAY
     Route: 048
     Dates: start: 2001, end: 2011

REACTIONS (9)
  - Back disorder [Unknown]
  - Limb discomfort [Unknown]
  - Stress [Unknown]
  - Back injury [Unknown]
  - Osteoporosis [Unknown]
  - Multiple fractures [Unknown]
  - Local swelling [Unknown]
  - Aphonia [Unknown]
  - Hearing impaired [Unknown]
